FAERS Safety Report 5363239-7 (Version None)
Quarter: 2007Q2

REPORT INFORMATION
  Report Type: 
  Country: None (occurrence: None)
  Receive Date: 20070530
  Receipt Date: 20070220
  Transmission Date: 20071010
  Serious: No
  Sender: FDA-Public Use
  Company Number: 2006PV025707

PATIENT
  Age: 68 Year
  Sex: Female
  Weight: 79.3795 kg

DRUGS (9)
  1. BYETTA [Suspect]
     Indication: DIABETES MELLITUS NON-INSULIN-DEPENDENT
     Dosage: 5 MCG;BID;SC ; 5 MCG;BID;SC ; SC
     Route: 058
     Dates: start: 20061120, end: 20061120
  2. BYETTA [Suspect]
     Indication: DIABETES MELLITUS NON-INSULIN-DEPENDENT
     Dosage: 5 MCG;BID;SC ; 5 MCG;BID;SC ; SC
     Route: 058
     Dates: start: 20061117
  3. BYETTA [Suspect]
     Indication: DIABETES MELLITUS NON-INSULIN-DEPENDENT
     Dosage: 5 MCG;BID;SC ; 5 MCG;BID;SC ; SC
     Route: 058
     Dates: start: 20061201
  4. AVANDIA [Concomitant]
  5. METFORMIN HCL [Concomitant]
  6. GLIPIZIDE [Concomitant]
  7. STEROID [Concomitant]
  8. GLUCOPHAGE [Concomitant]
  9. GLUCOTROL [Concomitant]

REACTIONS (11)
  - BLOOD GLUCOSE DECREASED [None]
  - BLOOD GLUCOSE INCREASED [None]
  - CONTUSION [None]
  - DECREASED APPETITE [None]
  - INJECTION SITE BRUISING [None]
  - INJECTION SITE PAIN [None]
  - NAUSEA [None]
  - NERVOUSNESS [None]
  - STRESS [None]
  - TREMOR [None]
  - WEIGHT DECREASED [None]
